FAERS Safety Report 15258692 (Version 2)
Quarter: 2018Q3

REPORT INFORMATION
  Report Type: Spontaneous
  Country: US (occurrence: US)
  Receive Date: 20180809
  Receipt Date: 20180903
  Transmission Date: 20181010
  Serious: No
  Sender: FDA-Public Use
  Company Number: US-ASTRAZENECA-2018SE95551

PATIENT
  Sex: Female
  Weight: 44.9 kg

DRUGS (1)
  1. SYMBICORT [Suspect]
     Active Substance: BUDESONIDE\FORMOTEROL FUMARATE DIHYDRATE
     Indication: CHRONIC OBSTRUCTIVE PULMONARY DISEASE
     Dosage: 160MCG/4.5MCG, TWO PUFFS PER DAY
     Route: 055
     Dates: start: 2009

REACTIONS (5)
  - Wrong technique in product usage process [Unknown]
  - Device malfunction [Unknown]
  - Incorrect dose administered [Unknown]
  - Incorrect dose administered by device [Unknown]
  - Cough [Unknown]
